FAERS Safety Report 10171198 (Version 1)
Quarter: 2014Q2

REPORT INFORMATION
  Report Type: Spontaneous
  Country: US (occurrence: US)
  Receive Date: 20140514
  Receipt Date: 20140514
  Transmission Date: 20141212
  Serious: No
  Sender: FDA-Public Use
  Company Number: US-PFIZER INC-2014127899

PATIENT
  Age: 65 Year
  Sex: Female
  Weight: 72.56 kg

DRUGS (4)
  1. LYRICA [Suspect]
     Indication: FIBROMYALGIA
     Dosage: 125 (100 MG +25) MG, 2X/DAY
     Dates: start: 201310
  2. LYRICA [Suspect]
     Dosage: 25 MG, 2X/DAY
     Dates: start: 201404, end: 20140430
  3. ULTRAM [Concomitant]
     Indication: ARTHRITIS
     Dosage: 100 MG, 3X/DAY
  4. HYDROCHLOROTHIAZIDE [Concomitant]
     Indication: BLOOD PRESSURE ABNORMAL
     Dosage: 25 MG, DAILY

REACTIONS (1)
  - Pain [Unknown]
